FAERS Safety Report 20207111 (Version 1)
Quarter: 2021Q4

REPORT INFORMATION
  Report Type: Spontaneous
  Country: US (occurrence: None)
  Receive Date: 20211219
  Receipt Date: 20211219
  Transmission Date: 20220303
  Serious: Yes (Hospitalization, Disabling, Other)
  Sender: FDA-Public Use
  Company Number: None

PATIENT
  Age: 54 Year
  Sex: Female
  Weight: 75.6 kg

DRUGS (3)
  1. CLONAZEPAM [Suspect]
     Active Substance: CLONAZEPAM
     Indication: Sleep disorder
     Dosage: FREQUENCY : AT BEDTIME;?1 TABLET
     Route: 048
  2. TRAZODONE [Concomitant]
     Active Substance: TRAZODONE HYDROCHLORIDE
  3. TRAMADOL [Concomitant]
     Active Substance: TRAMADOL

REACTIONS (6)
  - Drug intolerance [None]
  - Drug withdrawal syndrome [None]
  - Adverse drug reaction [None]
  - Dyspnoea [None]
  - Disability [None]
  - Bedridden [None]

NARRATIVE: CASE EVENT DATE: 20190209
